FAERS Safety Report 14694702 (Version 1)
Quarter: 2018Q1

REPORT INFORMATION
  Report Type: Report from Study
  Country: DE (occurrence: DE)
  Receive Date: 20180329
  Receipt Date: 20180329
  Transmission Date: 20180509
  Serious: Yes (Other)
  Sender: FDA-Public Use
  Company Number: PHHY2018DE047228

PATIENT
  Sex: Female
  Weight: 75 kg

DRUGS (2)
  1. BISOPROLOL 1A PHARMA [Suspect]
     Active Substance: BISOPROLOL
     Indication: BLOOD PRESSURE DECREASED
     Dosage: 10 MG, QD
     Route: 048
     Dates: start: 2012
  2. BISOPROLOL 1A PHARMA [Suspect]
     Active Substance: BISOPROLOL
     Indication: CARDIAC FAILURE CHRONIC

REACTIONS (15)
  - Arteriosclerosis coronary artery [Unknown]
  - Arthralgia [Unknown]
  - Gout [Not Recovered/Not Resolved]
  - Sleep disorder [Not Recovered/Not Resolved]
  - Arrhythmia [Not Recovered/Not Resolved]
  - Hypotension [Not Recovered/Not Resolved]
  - Malaise [Not Recovered/Not Resolved]
  - Pulmonary oedema [Recovering/Resolving]
  - Type 2 diabetes mellitus [Not Recovered/Not Resolved]
  - Inflammatory marker increased [Not Recovered/Not Resolved]
  - Myocarditis [Unknown]
  - Blood cholesterol increased [Unknown]
  - Neuralgia [Unknown]
  - Coronary artery disease [Unknown]
  - Oedema peripheral [Not Recovered/Not Resolved]

NARRATIVE: CASE EVENT DATE: 2012
